FAERS Safety Report 9061515 (Version 1)
Quarter: 2013Q1

REPORT INFORMATION
  Report Type: Spontaneous
  Country: US (occurrence: None)
  Receive Date: 20130211
  Receipt Date: 20130211
  Transmission Date: 20140127
  Serious: Yes (Hospitalization)
  Sender: FDA-Public Use
  Company Number: None

PATIENT
  Sex: Female
  Weight: 27.6 kg

DRUGS (2)
  1. CYTARABINE [Suspect]
     Dates: end: 20130118
  2. MITOXANTRONE HYDROCHLORIDE [Suspect]
     Dates: end: 20130120

REACTIONS (6)
  - Platelet count decreased [None]
  - Atrial thrombosis [None]
  - Streptococcal sepsis [None]
  - Respiratory failure [None]
  - Hypotension [None]
  - Hypovolaemia [None]
